FAERS Safety Report 17047790 (Version 1)
Quarter: 2019Q4

REPORT INFORMATION
  Report Type: Spontaneous
  Country: AR (occurrence: AR)
  Receive Date: 20191119
  Receipt Date: 20191119
  Transmission Date: 20200122
  Serious: Yes (Other)
  Sender: FDA-Public Use
  Company Number: AR-PFIZER INC-2019495263

PATIENT
  Age: 40 Year
  Sex: Female

DRUGS (2)
  1. IBRANCE [Suspect]
     Active Substance: PALBOCICLIB
  2. LETROZOL [Concomitant]
     Active Substance: LETROZOLE

REACTIONS (7)
  - Cerebrovascular accident [Unknown]
  - Blindness [Unknown]
  - Peripheral swelling [Unknown]
  - Neoplasm progression [Unknown]
  - Gait disturbance [Unknown]
  - Contusion [Unknown]
  - Paralysis [Unknown]

NARRATIVE: CASE EVENT DATE: 201806
